FAERS Safety Report 24857164 (Version 1)
Quarter: 2025Q1

REPORT INFORMATION
  Report Type: Report from Study
  Country: TW (occurrence: TW)
  Receive Date: 20250117
  Receipt Date: 20250117
  Transmission Date: 20250409
  Serious: Yes (Hospitalization)
  Sender: PFIZER
  Company Number: TW-ABBVIE-17K-153-1885007-00

PATIENT
  Age: 30 Year
  Sex: Female
  Weight: 69 kg

DRUGS (3)
  1. UNASYN [Suspect]
     Active Substance: AMPICILLIN SODIUM\SULBACTAM SODIUM
     Route: 048
     Dates: start: 20170120, end: 20170124
  2. UNASYN [Suspect]
     Active Substance: AMPICILLIN SODIUM\SULBACTAM SODIUM
     Dosage: UNK UNK, 4X/DAY
     Route: 041
     Dates: start: 2017
  3. HUMIRA [Suspect]
     Active Substance: ADALIMUMAB
     Indication: Psoriasis
     Route: 058
     Dates: start: 20140311

REACTIONS (10)
  - Erythrodermic psoriasis [Recovered/Resolved]
  - Joint swelling [Recovered/Resolved]
  - Erythema [Recovered/Resolved]
  - Erythema [Recovering/Resolving]
  - Arthralgia [Recovered/Resolved]
  - Diarrhoea [Recovered/Resolved]
  - Pain in extremity [Recovered/Resolved]
  - Peripheral swelling [Recovering/Resolving]
  - Pigmentation disorder [Not Recovered/Not Resolved]
  - Pigmentation disorder [Unknown]

NARRATIVE: CASE EVENT DATE: 20170101
